FAERS Safety Report 12502703 (Version 1)
Quarter: 2016Q2

REPORT INFORMATION
  Report Type: Spontaneous
  Country: ZA (occurrence: ZA)
  Receive Date: 20160628
  Receipt Date: 20160628
  Transmission Date: 20160815
  Serious: Yes (Hospitalization, Other)
  Sender: FDA-Public Use
  Company Number: ZA-SCIEGEN PHARMACEUTICALS INC-2016SCILIT00240

PATIENT
  Age: 31 Year
  Sex: Female

DRUGS (3)
  1. TENOFOVIR [Suspect]
     Active Substance: TENOFOVIR
     Indication: ANTIRETROVIRAL THERAPY
     Dosage: 300 MG, QD
     Route: 065
  2. NEVIRAPINE TABLETS [Suspect]
     Active Substance: NEVIRAPINE
     Indication: ANTIRETROVIRAL THERAPY
     Dosage: 400 MG, QD
     Route: 065
  3. LAMIVUDINE. [Suspect]
     Active Substance: LAMIVUDINE
     Indication: ANTIRETROVIRAL THERAPY
     Dosage: 300 MG, QD
     Route: 065

REACTIONS (10)
  - Conjunctivitis [Unknown]
  - Stevens-Johnson syndrome [Recovered/Resolved]
  - Skin hyperpigmentation [Not Recovered/Not Resolved]
  - Eye pain [Unknown]
  - Eosinophil count increased [Recovered/Resolved]
  - Rash [Unknown]
  - Odynophagia [Unknown]
  - Epidermal necrosis [Recovered/Resolved]
  - Malaise [Unknown]
  - Cheilitis [Unknown]
